FAERS Safety Report 7366643-0 (Version None)
Quarter: 2011Q1

REPORT INFORMATION
  Report Type: 
  Country: None (occurrence: None)
  Receive Date: 20110317
  Receipt Date: 20110317
  Transmission Date: 20110831
  Serious: Yes (Other)
  Sender: FDA-Public Use
  Company Number: None

PATIENT
  Age: 45 Year
  Sex: Female
  Weight: 90.7194 kg

DRUGS (4)
  1. LEVOTHYROXINE SODIUM [Concomitant]
  2. MINOCYCLINE 50 MG MINOCYCLINE 50 MG DAN 5694 [Suspect]
     Indication: ROSACEA
     Dosage: ONE CAPSULE ONE TIME DAILY PO
     Route: 048
     Dates: start: 20110308, end: 20110317
  3. DOXYCYCLINE [Concomitant]
  4. CYCLOBENZAPRINE [Concomitant]

REACTIONS (4)
  - FLUSHING [None]
  - BLOOD URINE PRESENT [None]
  - FEELING HOT [None]
  - HYPERHIDROSIS [None]
